FAERS Safety Report 14617263 (Version 1)
Quarter: 2018Q1

REPORT INFORMATION
  Report Type: Spontaneous
  Country: US (occurrence: ES)
  Receive Date: 20180309
  Receipt Date: 20180309
  Transmission Date: 20180509
  Serious: Yes (Other)
  Sender: FDA-Public Use
  Company Number: US-JNJFOC-20180301867

PATIENT

DRUGS (3)
  1. TRUVADA [Suspect]
     Active Substance: EMTRICITABINE\TENOFOVIR DISOPROXIL FUMARATE
     Indication: HIV INFECTION
     Route: 065
  2. DARUNAVIR [Suspect]
     Active Substance: DARUNAVIR
     Indication: HIV INFECTION
     Route: 048
  3. RITONAVIR. [Suspect]
     Active Substance: RITONAVIR
     Indication: HIV INFECTION
     Route: 065

REACTIONS (15)
  - Fatigue [Unknown]
  - Abdominal pain [Unknown]
  - Headache [Unknown]
  - Arthralgia [Unknown]
  - Blood bilirubin increased [Unknown]
  - Diarrhoea [Unknown]
  - Vomiting [Unknown]
  - Back pain [Unknown]
  - Pyrexia [Recovering/Resolving]
  - Drug intolerance [Unknown]
  - Nausea [Unknown]
  - Dyspnoea [Unknown]
  - Pain in extremity [Unknown]
  - Blood glucose increased [Unknown]
  - Virologic failure [Unknown]
